FAERS Safety Report 10260866 (Version 2)
Quarter: 2014Q2

REPORT INFORMATION
  Report Type: Spontaneous
  Country: US (occurrence: US)
  Receive Date: 20140626
  Receipt Date: 20140626
  Transmission Date: 20141212
  Serious: Yes (Other)
  Sender: FDA-Public Use
  Company Number: US-JNJCP-30000226136

PATIENT
  Age: 31 Year
  Sex: Female

DRUGS (2)
  1. JOHNSONS BABY PRODUCTS [Suspect]
     Route: 061
     Dates: start: 2011, end: 2012
  2. SHOWER TO SHOWER TALCUM PRODUCT [Suspect]
     Route: 061
     Dates: start: 2011, end: 2012

REACTIONS (1)
  - Ovarian cancer [Unknown]
